FAERS Safety Report 19607464 (Version 1)
Quarter: 2021Q3

REPORT INFORMATION
  Report Type: Spontaneous
  Country: US (occurrence: US)
  Receive Date: 20210726
  Receipt Date: 20210726
  Transmission Date: 20211014
  Serious: Yes (Hospitalization)
  Sender: FDA-Public Use
  Company Number: US-STRIDES ARCOLAB LIMITED-2020SP013270

PATIENT
  Age: 54 Year
  Sex: Female

DRUGS (4)
  1. QUINACRINE [MEPACRINE] [Suspect]
     Active Substance: QUINACRINE
     Indication: SYSTEMIC LUPUS ERYTHEMATOSUS
     Dosage: UNK
     Route: 065
  2. METHYLPREDNISOLONE. [Suspect]
     Active Substance: METHYLPREDNISOLONE
     Indication: SYSTEMIC LUPUS ERYTHEMATOSUS
     Dosage: UNK
     Route: 042
  3. PREDNISOLONE. [Suspect]
     Active Substance: PREDNISOLONE
     Indication: SYSTEMIC LUPUS ERYTHEMATOSUS
     Dosage: UNK
     Route: 065
  4. MYCOPHENOLATE MOFETIL. [Suspect]
     Active Substance: MYCOPHENOLATE MOFETIL
     Indication: SYSTEMIC LUPUS ERYTHEMATOSUS
     Dosage: UNK
     Route: 065

REACTIONS (15)
  - Asthenia [Unknown]
  - Blindness [Not Recovered/Not Resolved]
  - Lymphopenia [Unknown]
  - Varicella zoster virus infection [Unknown]
  - Myelitis [Unknown]
  - Myalgia [Unknown]
  - Cranial nerve disorder [Unknown]
  - Dysphagia [Recovered/Resolved]
  - Paraplegia [Recovered/Resolved]
  - Muscular weakness [Recovered/Resolved]
  - Necrotising retinitis [Unknown]
  - Off label use [Unknown]
  - Fatigue [Unknown]
  - Hearing disability [Unknown]
  - Decreased vibratory sense [Unknown]
